FAERS Safety Report 13372528 (Version 1)
Quarter: 2017Q1

REPORT INFORMATION
  Report Type: Spontaneous
  Country: US (occurrence: US)
  Receive Date: 20170327
  Receipt Date: 20170327
  Transmission Date: 20170429
  Serious: No
  Sender: FDA-Public Use
  Company Number: US-INTERPRAG-PM-OCA2017-00100

PATIENT

DRUGS (7)
  1. ESTRADIOL. [Concomitant]
     Active Substance: ESTRADIOL
  2. SIROLIMUS. [Concomitant]
     Active Substance: SIROLIMUS
  3. GLIPIZIDE. [Concomitant]
     Active Substance: GLIPIZIDE
  4. NIFEDICAL XL [Concomitant]
     Active Substance: NIFEDIPINE
  5. FOSINOPRIL [Concomitant]
     Active Substance: FOSINOPRIL
  6. OCALIVA [Suspect]
     Active Substance: OBETICHOLIC ACID
     Indication: BILIARY CIRRHOSIS PRIMARY
     Dosage: 5 MG, QD
     Route: 048
     Dates: start: 20170112
  7. FOLIC ACID. [Concomitant]
     Active Substance: FOLIC ACID

REACTIONS (1)
  - Pruritus [Unknown]

NARRATIVE: CASE EVENT DATE: 201701
